FAERS Safety Report 4568293-8 (Version None)
Quarter: 2005Q1

REPORT INFORMATION
  Report Type: 
  Country: None (occurrence: None)
  Receive Date: 20050202
  Receipt Date: 20040924
  Transmission Date: 20050727
  Serious: Yes (Other)
  Sender: FDA-Public Use
  Company Number: GB-GLAXOSMITHKLINE-B0346296A

PATIENT
  Sex: Male

DRUGS (1)
  1. VENTOLIN [Suspect]
     Route: 065

REACTIONS (2)
  - CHOKING [None]
  - FOREIGN BODY ASPIRATION [None]
